FAERS Safety Report 4471237-0 (Version None)
Quarter: 2004Q4

REPORT INFORMATION
  Report Type: 
  Country: None (occurrence: None)
  Receive Date: 20041011
  Receipt Date: 20041006
  Transmission Date: 20050328
  Serious: Yes (Hospitalization)
  Sender: FDA-Public Use
  Company Number: BR-MERCK-0410BRA00254

PATIENT
  Age: 80 Year
  Sex: Female

DRUGS (4)
  1. ACETYLCYSTEINE [Concomitant]
     Route: 065
  2. SERETIDE [Concomitant]
     Route: 065
  3. SINGULAIR [Concomitant]
     Route: 048
  4. VIOXX [Suspect]
     Indication: BACK PAIN
     Route: 048
     Dates: start: 20030101

REACTIONS (3)
  - APNOEA [None]
  - MALAISE [None]
  - TACHYCARDIA [None]
